FAERS Safety Report 7465331-X (Version None)
Quarter: 2011Q2

REPORT INFORMATION
  Report Type: 
  Country: None (occurrence: None)
  Receive Date: 20110509
  Receipt Date: 20110504
  Transmission Date: 20111010
  Serious: Yes (Hospitalization)
  Sender: FDA-Public Use
  Company Number: SE-ELI_LILLY_AND_COMPANY-SE201008006924

PATIENT
  Sex: Female
  Weight: 86.7 kg

DRUGS (18)
  1. PREGABALIN [Suspect]
     Dosage: 150 MG, DAILY (1/D)
     Route: 048
     Dates: end: 20100824
  2. EMADINE [Concomitant]
     Indication: HYPERSENSITIVITY
     Dates: start: 20030101, end: 20100820
  3. AERIUS [Concomitant]
     Dosage: 5 MG, UNKNOWN
     Route: 065
     Dates: start: 20070101, end: 20100820
  4. PAPAVERIN [Concomitant]
     Indication: BLADDER PAIN
     Dates: start: 20080101, end: 20100820
  5. SIMVASTATIN [Concomitant]
     Dates: start: 20031201
  6. DULOXETINE HYDROCHLORIDE [Suspect]
     Indication: DIABETIC NEUROPATHY
     Dosage: 30 MG, DAILY (1/D)
     Route: 048
     Dates: end: 20100824
  7. PREGABALIN [Suspect]
     Indication: DIABETIC NEUROPATHY
     Dosage: 600 MG, DAILY (1/D)
     Route: 048
     Dates: start: 20100421
  8. IRBESARTAN [Concomitant]
     Indication: HYPERTENSION
     Dates: start: 20030101, end: 20100820
  9. LOCACORTEN [Concomitant]
     Indication: PRURITUS
     Dates: start: 20070101, end: 20100820
  10. PULMICORT [Concomitant]
     Dates: start: 20030101
  11. METOCLOPRAMIDE [Concomitant]
     Indication: NAUSEA
     Dates: start: 20080101
  12. INOLAXOL [Concomitant]
     Indication: CONSTIPATION
     Dates: start: 20080101, end: 20100820
  13. SPIRIVA [Concomitant]
     Route: 055
     Dates: start: 20030101, end: 20100820
  14. INSULIN [Concomitant]
     Indication: DIABETES MELLITUS
     Dates: start: 20030101
  15. MOVIPREP [Concomitant]
     Indication: CONSTIPATION
     Dates: start: 20080101, end: 20100820
  16. NEXIUM [Concomitant]
     Indication: REFLUX GASTRITIS
     Dosage: UNK, UNK
     Dates: start: 20030101, end: 20100820
  17. LEVOTHYROXINE SODIUM [Concomitant]
     Indication: HYPOTHYROIDISM
     Dates: start: 20030101
  18. PARACETAMOL [Concomitant]
     Indication: PAIN
     Dates: start: 20070101

REACTIONS (1)
  - CONCUSSION [None]
